FAERS Safety Report 11651143 (Version 1)
Quarter: 2015Q4

REPORT INFORMATION
  Report Type: Spontaneous
  Country: US (occurrence: US)
  Receive Date: 20151021
  Receipt Date: 20151021
  Transmission Date: 20160304
  Serious: No
  Sender: FDA-Public Use
  Company Number: US-BAUSCH-BL-2015-014267

PATIENT
  Sex: Female

DRUGS (5)
  1. BUPROPION HYDROCHLORIDE. [Suspect]
     Active Substance: BUPROPION HYDROCHLORIDE
     Indication: PRODUCT USED FOR UNKNOWN INDICATION
  2. BUPROPION SR [Suspect]
     Active Substance: BUPROPION
     Indication: FATIGUE
  3. BUPROPION SR [Suspect]
     Active Substance: BUPROPION
     Indication: ANXIETY
  4. BUPROPION SR [Suspect]
     Active Substance: BUPROPION
     Indication: DEPRESSION
  5. BUPROPION SR [Suspect]
     Active Substance: BUPROPION
     Indication: ATTENTION DEFICIT/HYPERACTIVITY DISORDER

REACTIONS (1)
  - Drug ineffective [Unknown]
